FAERS Safety Report 9470593 (Version 1)
Quarter: 2013Q3

REPORT INFORMATION
  Report Type: Report from Study
  Country: BR (occurrence: BR)
  Receive Date: 20130822
  Receipt Date: 20130822
  Transmission Date: 20140515
  Serious: Yes (Hospitalization, Other)
  Sender: FDA-Public Use
  Company Number: BR-ROCHE-1264017

PATIENT
  Sex: Female

DRUGS (4)
  1. XOLAIR [Suspect]
     Indication: ASTHMA
     Route: 065
  2. SPIRIVA [Concomitant]
  3. ONBRIZE [Concomitant]
  4. ALENIA (BRAZIL) [Concomitant]

REACTIONS (1)
  - Asthma [Recovering/Resolving]
